FAERS Safety Report 21121289 (Version 5)
Quarter: 2023Q2

REPORT INFORMATION
  Report Type: Spontaneous
  Country: US (occurrence: US)
  Receive Date: 20220722
  Receipt Date: 20230518
  Transmission Date: 20230721
  Serious: Yes (Other)
  Sender: FDA-Public Use
  Company Number: US-PFIZER INC-PV202200028246

PATIENT
  Age: 70 Year
  Sex: Male

DRUGS (3)
  1. INLYTA [Suspect]
     Active Substance: AXITINIB
     Dosage: 5 MG, 1X/DAY
  2. INLYTA [Suspect]
     Active Substance: AXITINIB
     Dosage: 10 MG, DAILY
  3. INLYTA [Suspect]
     Active Substance: AXITINIB
     Dosage: 6 MG, DAILY

REACTIONS (8)
  - Diarrhoea [Unknown]
  - Fatigue [Unknown]
  - Intestinal obstruction [Unknown]
  - Renal impairment [Unknown]
  - Blood pressure increased [Unknown]
  - Lethargy [Unknown]
  - Full blood count abnormal [Unknown]
  - Off label use [Unknown]
